FAERS Safety Report 6171014-9 (Version None)
Quarter: 2009Q2

REPORT INFORMATION
  Report Type: 
  Country: None (occurrence: None)
  Receive Date: 20090429
  Receipt Date: 20090428
  Transmission Date: 20091009
  Serious: Yes (Hospitalization)
  Sender: FDA-Public Use
  Company Number: SE-BRISTOL-MYERS SQUIBB COMPANY-14602734

PATIENT
  Age: 70 Year
  Sex: Female

DRUGS (4)
  1. HYDREA [Suspect]
     Indication: THROMBOCYTOPENIA
     Dates: start: 20090301, end: 20090322
  2. ALVEDON [Concomitant]
     Dosage: FORMULATION :TABLET
  3. TROMBYL [Concomitant]
     Dosage: FORMULATION :TABLET
  4. SIFROL [Concomitant]
     Dosage: FORMULATION :TABLET

REACTIONS (6)
  - ABDOMINAL PAIN UPPER [None]
  - HEADACHE [None]
  - NAUSEA [None]
  - PYREXIA [None]
  - SYNCOPE [None]
  - VOMITING [None]
